FAERS Safety Report 16241109 (Version 2)
Quarter: 2019Q2

REPORT INFORMATION
  Report Type: Report from Study
  Country: AU (occurrence: AU)
  Receive Date: 20190425
  Receipt Date: 20190523
  Transmission Date: 20190711
  Serious: Yes (Other)
  Sender: FDA-Public Use
  Company Number: PHHY2015AU069842

PATIENT
  Age: 49 Year
  Sex: Female

DRUGS (3)
  1. VITAMIN D [Concomitant]
     Active Substance: VITAMIN D NOS
     Indication: GENERAL PHYSICAL CONDITION
     Dosage: 1000 IU, UNK
     Route: 065
     Dates: start: 20150413
  2. GILENYA [Suspect]
     Active Substance: FINGOLIMOD HYDROCHLORIDE
     Indication: MULTIPLE SCLEROSIS
     Dosage: UNK, QD
     Route: 048
     Dates: start: 20150219
  3. FISH OIL [Concomitant]
     Active Substance: FISH OIL
     Indication: GENERAL PHYSICAL CONDITION
     Dosage: UNK
     Route: 065
     Dates: start: 20150313

REACTIONS (10)
  - Lymphocyte count increased [Unknown]
  - Alanine aminotransferase increased [Unknown]
  - Squamous cell carcinoma of the vulva [Unknown]
  - Vulval leukoplakia [Recovered/Resolved]
  - Gamma-glutamyltransferase increased [Unknown]
  - Nasopharyngitis [Unknown]
  - Bronchitis [Recovered/Resolved]
  - Aspartate aminotransferase increased [Unknown]
  - Sinus bradycardia [Recovered/Resolved]
  - Concomitant disease progression [Recovered/Resolved]

NARRATIVE: CASE EVENT DATE: 20150219
